FAERS Safety Report 10381558 (Version 1)
Quarter: 2014Q1

REPORT INFORMATION
  Report Type: Spontaneous
  Country: US (occurrence: None)
  Receive Date: 20140306
  Receipt Date: 20140306
  Transmission Date: 20141002
  Serious: Yes (Hospitalization)
  Sender: FDA-Public Use
  Company Number: 163-21880-13023643

PATIENT
  Age: 69 Year
  Sex: Female

DRUGS (8)
  1. REVLIMID (LENALIDOMIDE) [Suspect]
     Indication: PLASMA CELL MYELOMA
     Dosage: 14 IN 14D
     Route: 048
     Dates: start: 20130204
  2. ACICLOVIR (ACICLOVIR) [Concomitant]
  3. GEMFIBROZIL (GEMFIBROZIL) [Concomitant]
  4. VICODIN (VICODIN) [Concomitant]
  5. DILAUDID (HYDROMORPHONE HYDROCHLORIDE) [Concomitant]
  6. DEXAMETHASONE (DEXAMETHASONE) [Concomitant]
  7. CYMBALTA [Concomitant]
  8. LOPRESSOR (METOPROLOL TARTRATE) [Concomitant]

REACTIONS (1)
  - Constipation [None]
